FAERS Safety Report 10250964 (Version 2)
Quarter: 2014Q2

REPORT INFORMATION
  Report Type: Spontaneous
  Country: DE (occurrence: DE)
  Receive Date: 20140620
  Receipt Date: 20140620
  Transmission Date: 20141212
  Serious: Yes (Other)
  Sender: FDA-Public Use
  Company Number: PHHY2014DE034182

PATIENT
  Age: 61 Year
  Sex: Male
  Weight: 101 kg

DRUGS (4)
  1. ULTIBRO BREEZHALER [Suspect]
     Indication: CHRONIC OBSTRUCTIVE PULMONARY DISEASE
     Dosage: 1 DF, QD
     Route: 055
     Dates: start: 20131211, end: 20131219
  2. OLMETEC PLUS [Concomitant]
     Indication: HYPERTENSION
     Dosage: 1 DF, QD
     Route: 048
  3. NEBIVOLOL [Concomitant]
     Indication: HYPERTENSION
     Dosage: 0.5 DF, QD
     Route: 048
  4. METFORMIN [Concomitant]
     Indication: DIABETES MELLITUS
     Dosage: 1 DF, BID
     Route: 048

REACTIONS (3)
  - Visual impairment [Recovered/Resolved]
  - Headache [Recovered/Resolved]
  - Neck pain [Recovered/Resolved]
